FAERS Safety Report 13365299 (Version 1)
Quarter: 2017Q1

REPORT INFORMATION
  Report Type: Spontaneous
  Country: US (occurrence: US)
  Receive Date: 20170323
  Receipt Date: 20170323
  Transmission Date: 20170429
  Serious: No
  Sender: FDA-Public Use
  Company Number: US-ALLERGAN-2017-000017

PATIENT
  Age: 81 Year
  Sex: Female

DRUGS (4)
  1. PROBIOTICS [Concomitant]
     Active Substance: PROBIOTICS NOS
  2. ESTRACE [Suspect]
     Active Substance: ESTRADIOL
     Indication: BURNING SENSATION
     Dosage: A COUPLE OF APPLICATIONS
     Route: 061
     Dates: start: 20170103, end: 20170104
  3. ESTRACE [Suspect]
     Active Substance: ESTRADIOL
     Dosage: UNK, UNKNOWN
     Route: 065
     Dates: start: 2012
  4. BACTRIM [Concomitant]
     Active Substance: SULFAMETHOXAZOLE\TRIMETHOPRIM
     Indication: URINARY TRACT INFECTION

REACTIONS (4)
  - Drug ineffective for unapproved indication [Unknown]
  - Wrong technique in product usage process [Unknown]
  - Vulvovaginal pruritus [Unknown]
  - Product use issue [Unknown]

NARRATIVE: CASE EVENT DATE: 20170103
